FAERS Safety Report 5501516-7 (Version None)
Quarter: 2007Q4

REPORT INFORMATION
  Report Type: 
  Country: None (occurrence: None)
  Receive Date: 20071030
  Receipt Date: 20071023
  Transmission Date: 20080405
  Serious: Yes (Hospitalization)
  Sender: FDA-Public Use
  Company Number: PHRM2007FR00700

PATIENT
  Age: 24 Year
  Sex: Male
  Weight: 78 kg

DRUGS (1)
  1. ZOMETA [Suspect]
     Indication: METASTASES TO BONE
     Dosage: 4 MG, QMO
     Route: 042
     Dates: start: 20061017, end: 20061017

REACTIONS (7)
  - ANAPHYLACTOID REACTION [None]
  - BACK PAIN [None]
  - BLOOD CULTURE POSITIVE [None]
  - ERYTHEMA [None]
  - HYPOTENSION [None]
  - MALAISE [None]
  - SKIN TEST POSITIVE [None]
